FAERS Safety Report 24364027 (Version 1)
Quarter: 2024Q3

REPORT INFORMATION
  Report Type: Spontaneous
  Country: NL (occurrence: NL)
  Receive Date: 20240925
  Receipt Date: 20240925
  Transmission Date: 20241017
  Serious: Yes (Disabling)
  Sender: TEVA
  Company Number: None

PATIENT
  Age: 56 Year
  Sex: Female
  Weight: 58 kg

DRUGS (3)
  1. OXAZEPAM [Suspect]
     Active Substance: OXAZEPAM
     Indication: Product used for unknown indication
     Dosage: 1 PIECE ONCE A DAY, BRAND NAME NOT SPECIFIED
     Route: 065
     Dates: start: 20240102
  2. BUPRENORPHINE [Suspect]
     Active Substance: BUPRENORPHINE
     Indication: Product used for unknown indication
     Dosage: 1/2 PIECE TWICE A DAY , TEMGESIC SL
     Route: 065
     Dates: start: 20150901
  3. NORTRIPTYLINE HYDROCHLORIDE [Suspect]
     Active Substance: NORTRIPTYLINE HYDROCHLORIDE
     Indication: Depressed mood
     Dosage: 1 PIECE 3 TIMES A DAY
     Route: 065
     Dates: start: 20230501

REACTIONS (6)
  - Migraine [Recovering/Resolving]
  - Fatigue [Recovering/Resolving]
  - Product substitution issue [Unknown]
  - Product substitution issue [Unknown]
  - Pain [Recovering/Resolving]
  - Withdrawal syndrome [Recovering/Resolving]
